FAERS Safety Report 25450330 (Version 1)
Quarter: 2025Q2

REPORT INFORMATION
  Report Type: Spontaneous
  Country: CN (occurrence: CN)
  Receive Date: 20250618
  Receipt Date: 20250618
  Transmission Date: 20250716
  Serious: Yes (Other)
  Sender: BAXTER
  Company Number: None

PATIENT
  Age: 7 Year
  Sex: Male
  Weight: 19 kg

DRUGS (2)
  1. CYCLOPHOSPHAMIDE [Suspect]
     Active Substance: CYCLOPHOSPHAMIDE
     Indication: Acute lymphocytic leukaemia
     Dosage: 240 MG, QD (CYCLOPHOSPHAMIDE FOR INJECTION 0.95G) FOR TWO CONSECUTIVE DAYS
     Route: 041
     Dates: start: 20250522, end: 20250523
  2. SODIUM CHLORIDE [Suspect]
     Active Substance: SODIUM CHLORIDE
     Dosage: 240 ML, QD (0.9% SODIUM CHLORIDE INJECTION) FOR TWO CONSECUTIVE DAYS WITH CYCLOPHOSPHAMIDE
     Route: 041
     Dates: start: 20250522, end: 20250523

REACTIONS (2)
  - Myelosuppression [Unknown]
  - White blood cell count decreased [Recovering/Resolving]

NARRATIVE: CASE EVENT DATE: 20250522
